FAERS Safety Report 8269601-7 (Version None)
Quarter: 2012Q2

REPORT INFORMATION
  Report Type: 
  Country: None (occurrence: None)
  Receive Date: 20120410
  Receipt Date: 20120321
  Transmission Date: 20120825
  Serious: Yes (Life-Threatening)
  Sender: FDA-Public Use
  Company Number: JP-BIOGENIDEC-2012BI011971

PATIENT
  Age: 78 Year
  Sex: Male

DRUGS (4)
  1. METHYCOBAL [Concomitant]
     Dates: start: 20090411, end: 20091219
  2. PLAVIX [Concomitant]
     Dates: start: 20090411, end: 20110617
  3. CILOSTAZOL [Concomitant]
     Dates: start: 20110619
  4. AVONEX [Suspect]
     Indication: MULTIPLE SCLEROSIS
     Route: 030
     Dates: start: 20091205

REACTIONS (1)
  - HEPATIC NEOPLASM MALIGNANT [None]
